FAERS Safety Report 10270041 (Version 2)
Quarter: 2014Q3

REPORT INFORMATION
  Report Type: Spontaneous
  Country: US (occurrence: None)
  Receive Date: 20140626
  Receipt Date: 20140711
  Transmission Date: 20150326
  Serious: Yes (Death, Other)
  Sender: FDA-Public Use
  Company Number: 2014EXPUS00190

PATIENT
  Age: 50 Year
  Sex: Female

DRUGS (1)
  1. EXPAREL [Suspect]
     Active Substance: BUPIVACAINE
     Indication: POSTOPERATIVE ANALGESIA
     Dosage: INJECTED INTO THE PERI-RECTAL AREA (TOWARDS THE PUDENDAL NERVES)
     Route: 050

REACTIONS (7)
  - Blood pressure decreased [None]
  - Ventricular arrhythmia [None]
  - Cardiac disorder [None]
  - Cardiac arrest [None]
  - Electrocardiogram abnormal [None]
  - Arrhythmia [None]
  - Ventricular tachycardia [None]
